FAERS Safety Report 11875527 (Version 1)
Quarter: 2015Q4

REPORT INFORMATION
  Report Type: Report from Study
  Country: US (occurrence: US)
  Receive Date: 20151229
  Receipt Date: 20151229
  Transmission Date: 20160305
  Serious: Yes (Other)
  Sender: FDA-Public Use
  Company Number: US-PFIZER INC-2015452845

PATIENT
  Weight: .67 kg

DRUGS (3)
  1. GABAPENTIN. [Suspect]
     Active Substance: GABAPENTIN
     Indication: SEIZURE
     Dosage: 5 MG/KG, 1X/DAY
  2. LEVETIRACETAM. [Concomitant]
     Active Substance: LEVETIRACETAM
     Dosage: UNK
  3. GABAPENTIN. [Suspect]
     Active Substance: GABAPENTIN
     Indication: FEEDING INTOLERANCE
     Dosage: 5 MG/KG, Q8

REACTIONS (5)
  - Infantile vomiting [Recovered/Resolved]
  - Neonatal tachycardia [Recovered/Resolved]
  - Product use issue [Unknown]
  - Agitation neonatal [Recovered/Resolved]
  - Drug withdrawal syndrome [Recovered/Resolved]
